FAERS Safety Report 7209012-6 (Version None)
Quarter: 2011Q1

REPORT INFORMATION
  Report Type: 
  Country: None (occurrence: None)
  Receive Date: 20110104
  Receipt Date: 20101231
  Transmission Date: 20110831
  Serious: Yes (Hospitalization, Other)
  Sender: FDA-Public Use
  Company Number: US-PFIZER INC-US-WYE-H06342708

PATIENT
  Sex: Female

DRUGS (24)
  1. HYDRODIURIL [Concomitant]
     Route: 048
  2. PREVACID [Concomitant]
     Route: 065
  3. LEXAPRO [Concomitant]
     Dosage: UNK
     Route: 065
     Dates: start: 20080801
  4. HYDRODIURIL [Concomitant]
     Route: 065
  5. ZITHROMAX [Suspect]
     Route: 065
  6. REVLIMID [Suspect]
     Dosage: 25 MG, 1X/DAY
     Route: 048
     Dates: start: 20080826
  7. MAGNESIUM OXIDE [Concomitant]
     Route: 065
  8. PREDNISONE [Concomitant]
     Dosage: UNK
     Route: 065
     Dates: start: 20080820
  9. ALDACTONE [Concomitant]
     Route: 048
  10. ZOMETA [Concomitant]
     Dosage: UNK
     Route: 042
     Dates: start: 20080716
  11. EFFEXOR [Suspect]
     Route: 065
  12. HYDROCHLOROTHIAZIDE [Concomitant]
     Route: 065
  13. PRILOSEC [Concomitant]
     Route: 065
  14. ASPIRIN [Concomitant]
  15. REVLIMID [Suspect]
     Indication: MULTIPLE MYELOMA
     Dosage: 25 MG, 1X/DAY
     Route: 048
     Dates: start: 20080610, end: 20080630
  16. EPOETIN ALFA [Concomitant]
     Route: 065
  17. NYSTATIN [Concomitant]
     Route: 065
  18. POTASSIUM PHOSPHATE MONOBASIC/SODIUM PHOSPHATE [Concomitant]
  19. DECADRON [Concomitant]
     Route: 065
  20. LEXAPRO [Concomitant]
     Route: 065
  21. HYDROCHLOROTHIAZIDE [Concomitant]
     Route: 048
  22. MIRALAX [Concomitant]
     Route: 065
  23. MEGACE [Concomitant]
     Route: 065
  24. K-DUR [Concomitant]
     Route: 065

REACTIONS (17)
  - PANCYTOPENIA [None]
  - HYPOKALAEMIA [None]
  - HYPOCALCAEMIA [None]
  - DECREASED APPETITE [None]
  - OEDEMA [None]
  - DIARRHOEA [None]
  - PNEUMONIA [None]
  - FLUID OVERLOAD [None]
  - CONSTIPATION [None]
  - TACHYCARDIA [None]
  - LIVER FUNCTION TEST ABNORMAL [None]
  - VOMITING [None]
  - CANDIDIASIS [None]
  - DEHYDRATION [None]
  - NAUSEA [None]
  - WEIGHT DECREASED [None]
  - HYPOPROTEINAEMIA [None]
